FAERS Safety Report 22308512 (Version 7)
Quarter: 2023Q4

REPORT INFORMATION
  Report Type: Report from Study
  Country: US (occurrence: US)
  Receive Date: 20230511
  Receipt Date: 20231227
  Transmission Date: 20240110
  Serious: Yes (Other)
  Sender: FDA-Public Use
  Company Number: US-002147023-NVSC2023US104078

PATIENT
  Sex: Female

DRUGS (1)
  1. KESIMPTA [Suspect]
     Active Substance: OFATUMUMAB
     Indication: Multiple sclerosis
     Dosage: UNK, QMO
     Route: 058

REACTIONS (16)
  - Multiple sclerosis [Unknown]
  - Neck pain [Unknown]
  - Paraesthesia [Unknown]
  - Insomnia [Recovering/Resolving]
  - Vibratory sense increased [Unknown]
  - Fatigue [Unknown]
  - Tremor [Unknown]
  - Arthralgia [Unknown]
  - Joint noise [Unknown]
  - Sinusitis [Unknown]
  - Sinus congestion [Unknown]
  - Head discomfort [Unknown]
  - Paranasal sinus discomfort [Unknown]
  - Sluggishness [Unknown]
  - Injection site pain [Unknown]
  - COVID-19 [Unknown]
